FAERS Safety Report 8251204-1 (Version None)
Quarter: 2012Q2

REPORT INFORMATION
  Report Type: 
  Country: None (occurrence: None)
  Receive Date: 20120402
  Receipt Date: 20120321
  Transmission Date: 20120825
  Serious: Yes (Hospitalization, Other)
  Sender: FDA-Public Use
  Company Number: US-MERCK-1110USA00937

PATIENT
  Age: 51 Year
  Sex: Female
  Weight: 65 kg

DRUGS (13)
  1. FOSAMAX [Suspect]
     Indication: OSTEOPENIA
     Route: 048
     Dates: start: 19990101, end: 20080201
  2. CALCIUM (UNSPECIFIED) [Concomitant]
     Route: 065
     Dates: start: 19900101
  3. FOSAMAX [Suspect]
     Indication: OSTEOPOROSIS
     Route: 048
     Dates: start: 19990101, end: 20080201
  4. ADVAIR DISKUS 100/50 [Concomitant]
     Route: 065
     Dates: start: 20080101, end: 20110101
  5. SINGULAIR [Concomitant]
     Route: 065
     Dates: start: 20050101
  6. METHOTREXATE [Concomitant]
     Route: 065
     Dates: start: 20050101
  7. VITAMIN D (UNSPECIFIED) [Concomitant]
     Route: 065
     Dates: start: 19900101
  8. RELAFEN [Concomitant]
     Route: 065
     Dates: start: 19970101
  9. OMEGA-3 MARINE TRIGLYCERIDES [Concomitant]
     Route: 065
     Dates: start: 19960101
  10. ARAVA [Concomitant]
     Route: 065
     Dates: start: 20010101
  11. ALENDRONATE SODIUM [Suspect]
     Indication: OSTEOPENIA
     Route: 048
     Dates: start: 20080101, end: 20090901
  12. ALENDRONATE SODIUM [Suspect]
     Indication: OSTEOPOROSIS
     Route: 048
     Dates: start: 20080101, end: 20090901
  13. VENTOLIN [Concomitant]
     Route: 065
     Dates: start: 19910101

REACTIONS (53)
  - VARICOSE VEIN [None]
  - BURSITIS [None]
  - SJOGREN'S SYNDROME [None]
  - FALL [None]
  - ABNORMAL WEIGHT GAIN [None]
  - FATIGUE [None]
  - VITREOUS FLOATERS [None]
  - LIGAMENT SPRAIN [None]
  - DIZZINESS [None]
  - ROTATOR CUFF SYNDROME [None]
  - RETINOPATHY [None]
  - PALPITATIONS [None]
  - GASTROINTESTINAL HAEMORRHAGE [None]
  - CATARACT NUCLEAR [None]
  - CONTUSION [None]
  - NAUSEA [None]
  - MELANOCYTIC NAEVUS [None]
  - HAEMANGIOMA [None]
  - SKIN DISCOLOURATION [None]
  - MUSCLE STRAIN [None]
  - TINNITUS [None]
  - FEMUR FRACTURE [None]
  - ACROCHORDON [None]
  - ADVERSE DRUG REACTION [None]
  - ADVERSE EVENT [None]
  - LUNG NEOPLASM [None]
  - PIGMENTATION DISORDER [None]
  - DRY EYE [None]
  - SEBORRHOEIC KERATOSIS [None]
  - RHEUMATOID ARTHRITIS [None]
  - ALOPECIA [None]
  - MUSCULOSKELETAL CHEST PAIN [None]
  - RETINITIS PIGMENTOSA [None]
  - INSOMNIA [None]
  - HYPOKALAEMIA [None]
  - BENIGN NEOPLASM OF SKIN [None]
  - BLOOD DISORDER [None]
  - DIASTOLIC DYSFUNCTION [None]
  - RHINITIS ALLERGIC [None]
  - PARTIAL LIPODYSTROPHY [None]
  - PAIN IN EXTREMITY [None]
  - HELICOBACTER INFECTION [None]
  - HAEMORRHOIDAL HAEMORRHAGE [None]
  - GASTROOESOPHAGEAL REFLUX DISEASE [None]
  - BRONCHITIS [None]
  - HYPERLIPIDAEMIA [None]
  - FRACTURE DELAYED UNION [None]
  - VISUAL ACUITY REDUCED [None]
  - HAEMORRHAGIC ANAEMIA [None]
  - ADJUSTMENT DISORDER [None]
  - FIBROUS HISTIOCYTOMA [None]
  - PAIN [None]
  - HYPERTENSION [None]
